FAERS Safety Report 9308135 (Version 1)
Quarter: 2013Q2

REPORT INFORMATION
  Report Type: Spontaneous
  Country: IT (occurrence: IT)
  Receive Date: 20130524
  Receipt Date: 20130524
  Transmission Date: 20140414
  Serious: Yes (Other)
  Sender: FDA-Public Use
  Company Number: IT-PFIZER INC-2013159219

PATIENT
  Age: 4 Year
  Sex: Male
  Weight: 16 kg

DRUGS (4)
  1. LINEZOLID [Suspect]
     Dosage: 160 MG, 1X/DAY
     Route: 042
     Dates: start: 20130510, end: 20130510
  2. MERREM [Suspect]
     Dosage: 1.5 G, 1X/DAY
     Route: 042
     Dates: start: 20130428, end: 20130512
  3. ENOXAPARIN SODIUM [Concomitant]
     Dosage: UNK
     Route: 065
     Dates: start: 20130503, end: 20130512
  4. BETAMETHASONE [Concomitant]
     Dosage: UNK
     Route: 065
     Dates: start: 20130508, end: 20130513

REACTIONS (2)
  - Mastoiditis [Unknown]
  - Rash generalised [Recovering/Resolving]
